FAERS Safety Report 7390178-2 (Version None)
Quarter: 2011Q2

REPORT INFORMATION
  Report Type: 
  Country: None (occurrence: None)
  Receive Date: 20110401
  Receipt Date: 20110330
  Transmission Date: 20111010
  Serious: Yes (Death)
  Sender: FDA-Public Use
  Company Number: PHHY2011US25890

PATIENT
  Sex: Male

DRUGS (12)
  1. DEXAMETHASONE [Concomitant]
  2. NEURONTIN [Concomitant]
  3. NORCO [Concomitant]
  4. LEXAPRO [Concomitant]
  5. PRAVASTATIN [Concomitant]
  6. LASIX [Concomitant]
  7. JANUVIA [Concomitant]
  8. ZOMETA [Suspect]
  9. BACLOFEN [Concomitant]
  10. TRAMADOL [Concomitant]
  11. KLOR-CON [Concomitant]
  12. LISINOPRIL [Concomitant]

REACTIONS (1)
  - DEATH [None]
